FAERS Safety Report 16287455 (Version 1)
Quarter: 2019Q2

REPORT INFORMATION
  Report Type: Report from Study
  Country: US (occurrence: US)
  Receive Date: 20190508
  Receipt Date: 20190508
  Transmission Date: 20190711
  Serious: Yes (Hospitalization, Other)
  Sender: FDA-Public Use
  Company Number: US-SA-2016SA015423

PATIENT
  Age: 65 Year
  Sex: Male

DRUGS (1)
  1. INSULIN GLARGINE [Suspect]
     Active Substance: INSULIN GLARGINE
     Indication: TYPE 2 DIABETES MELLITUS
     Dosage: 50 DF,QD

REACTIONS (6)
  - Nasopharyngitis [Unknown]
  - Product dose omission [Unknown]
  - Hallucination [Unknown]
  - Nephrolithiasis [Unknown]
  - Malaise [Unknown]
  - Loss of consciousness [Unknown]
